FAERS Safety Report 4454406-5 (Version None)
Quarter: 2004Q3

REPORT INFORMATION
  Report Type: 
  Country: None (occurrence: None)
  Receive Date: 20040921
  Receipt Date: 20040913
  Transmission Date: 20050211
  Serious: Yes (Death)
  Sender: FDA-Public Use
  Company Number: CA-JNJFOC-20040901342

PATIENT
  Sex: Male
  Weight: 57 kg

DRUGS (7)
  1. REMICADE [Suspect]
     Indication: RHEUMATOID ARTHRITIS
     Dosage: 4 DOSES AT 0-3-6 AND 8 WEEKS.
     Route: 042
  2. NAPROXENE [Concomitant]
     Route: 049
  3. MISOPROSTOL [Concomitant]
     Route: 049
  4. PREDNISONE [Concomitant]
  5. PREVACID [Concomitant]
     Dosage: TAKEN BECAUSE OF NAPROXEN AND PREDNISONE.
     Route: 049
  6. LANOXIN [Concomitant]
     Indication: ATRIAL FIBRILLATION
     Route: 049
  7. WARFARIN SODIUM [Concomitant]
     Indication: ATRIAL FIBRILLATION

REACTIONS (3)
  - ACUTE PULMONARY OEDEMA [None]
  - CARDIAC DISORDER [None]
  - CARDIAC FAILURE [None]
